FAERS Safety Report 4403691-4 (Version None)
Quarter: 2004Q3

REPORT INFORMATION
  Report Type: 
  Country: None (occurrence: None)
  Receive Date: 20040719
  Receipt Date: 20040707
  Transmission Date: 20050211
  Serious: Yes (Other)
  Sender: FDA-Public Use
  Company Number: 2004IM000753

PATIENT
  Sex: Female

DRUGS (2)
  1. ACTIMMUNE [Suspect]
     Indication: INTERSTITIAL LUNG DISEASE
     Dosage: 200 UG;TIW;SUBCUTANEOUS
     Route: 058
     Dates: start: 20040101, end: 20040101
  2. ENBREL [Concomitant]

REACTIONS (2)
  - INFLUENZA LIKE ILLNESS [None]
  - TOOTH LOSS [None]
